FAERS Safety Report 25679862 (Version 1)
Quarter: 2025Q3

REPORT INFORMATION
  Report Type: Spontaneous
  Country: US (occurrence: US)
  Receive Date: 20250814
  Receipt Date: 20250814
  Transmission Date: 20251021
  Serious: Yes (Hospitalization)
  Sender: AUROBINDO
  Company Number: US-AUROBINDO-AUR-APL-2025-009776

PATIENT
  Age: 76 Year
  Sex: Female
  Weight: 90.3 kg

DRUGS (2)
  1. BELINOSTAT [Suspect]
     Active Substance: BELINOSTAT
     Indication: Metastatic ocular melanoma
     Route: 042
     Dates: start: 20240909, end: 20240912
  2. BINIMETINIB [Suspect]
     Active Substance: BINIMETINIB
     Indication: Metastatic ocular melanoma
     Dosage: 45 MILLIGRAM, TWO TIMES A DAY (2X/DAY, OF EACH 21 DAY CYCLE)
     Route: 048

REACTIONS (1)
  - Aspartate aminotransferase increased [Recovered/Resolved]

NARRATIVE: CASE EVENT DATE: 20241021
